FAERS Safety Report 5052370-1 (Version None)
Quarter: 2006Q3

REPORT INFORMATION
  Report Type: 
  Country: None (occurrence: None)
  Receive Date: 20060717
  Receipt Date: 20060601
  Transmission Date: 20061208
  Serious: Yes (Life-Threatening, Hospitalization, Other)
  Sender: FDA-Public Use
  Company Number: 2006UW10377

PATIENT
  Age: 26882 Day
  Sex: Male
  Weight: 77 kg

DRUGS (6)
  1. ZOLADEX [Suspect]
     Indication: PROSTATE CANCER
     Route: 058
     Dates: start: 20051001
  2. ZOMETA [Suspect]
     Indication: HYPERCALCAEMIA OF MALIGNANCY
     Route: 042
     Dates: start: 20060202, end: 20060502
  3. COUMADIN [Concomitant]
     Indication: CARDIAC VALVE PROSTHESIS USER
     Route: 048
     Dates: start: 19960102, end: 20060519
  4. LIPITOR [Concomitant]
  5. PLENDIL [Concomitant]
     Route: 048
     Dates: start: 19960102
  6. ZOCOR [Concomitant]
     Dates: start: 20000101

REACTIONS (4)
  - ANAEMIA [None]
  - ARTERIOVENOUS MALFORMATION [None]
  - GASTROINTESTINAL HAEMORRHAGE [None]
  - HYPERCALCAEMIA OF MALIGNANCY [None]
